FAERS Safety Report 19290099 (Version 1)
Quarter: 2021Q2

REPORT INFORMATION
  Report Type: Spontaneous
  Country: US (occurrence: US)
  Receive Date: 20210521
  Receipt Date: 20210521
  Transmission Date: 20210717
  Serious: No
  Sender: FDA-Public Use
  Company Number: US-RADIUS HEALTH INC.-2021US000319

PATIENT
  Age: 63 Year
  Sex: Female

DRUGS (1)
  1. TYMLOS [Suspect]
     Active Substance: ABALOPARATIDE
     Indication: PRODUCT USED FOR UNKNOWN INDICATION
     Dosage: 80, QD
     Route: 058
     Dates: start: 202101

REACTIONS (3)
  - Balance disorder [Unknown]
  - Tremor [Unknown]
  - Bone pain [Unknown]

NARRATIVE: CASE EVENT DATE: 20210125
